FAERS Safety Report 5536931-9 (Version None)
Quarter: 2007Q4

REPORT INFORMATION
  Report Type: 
  Country: None (occurrence: None)
  Receive Date: 20071207
  Receipt Date: 20071203
  Transmission Date: 20080405
  Serious: Yes (Other)
  Sender: FDA-Public Use
  Company Number: PHEH2007US08465

PATIENT
  Age: 67 Year
  Sex: Male

DRUGS (10)
  1. ZOMETA [Suspect]
     Indication: METASTASES TO BONE
     Dosage: 4 MG Q MONTHLY
     Route: 042
     Dates: start: 20041020, end: 20070322
  2. FLUTAMID [Concomitant]
     Dates: start: 20020501, end: 20040701
  3. NILANDRON [Concomitant]
  4. AMOXICILLIN [Concomitant]
     Dosage: 500 MG, TID
     Route: 048
     Dates: start: 20070524
  5. LUPRON [Concomitant]
  6. VIADUR [Concomitant]
  7. VYTORIN [Concomitant]
  8. ADVAIR DISKUS 100/50 [Concomitant]
  9. SPIRIVA [Concomitant]
  10. ASPIRIN [Concomitant]

REACTIONS (18)
  - BIOPSY [None]
  - BONE DEBRIDEMENT [None]
  - BONE DISORDER [None]
  - DENTAL CARE [None]
  - ERYTHEMA [None]
  - GINGIVAL INFECTION [None]
  - GINGIVAL SWELLING [None]
  - IMPAIRED HEALING [None]
  - INFLAMMATION [None]
  - MASTICATION DISORDER [None]
  - OSTEOLYSIS [None]
  - OSTEOMYELITIS [None]
  - OSTEONECROSIS [None]
  - PAIN IN JAW [None]
  - POOR DENTAL CONDITION [None]
  - SOFT TISSUE INFECTION [None]
  - SURGERY [None]
  - TOOTH EXTRACTION [None]
